APPROVED DRUG PRODUCT: CHROMIC CHLORIDE
Active Ingredient: CHROMIC CHLORIDE
Strength: EQ 0.004MG CHROMIUM/ML
Dosage Form/Route: INJECTABLE;INJECTION
Application: N019271 | Product #001
Applicant: ABRAXIS PHARMACEUTICAL PRODUCTS
Approved: May 5, 1987 | RLD: No | RS: No | Type: DISCN